FAERS Safety Report 24703916 (Version 2)
Quarter: 2024Q4

REPORT INFORMATION
  Report Type: Spontaneous
  Country: JP (occurrence: JP)
  Receive Date: 20241206
  Receipt Date: 20241229
  Transmission Date: 20250115
  Serious: Yes (Other)
  Sender: ALEXION PHARMACEUTICALS
  Company Number: JP-ASTRAZENECA-240060699_012620_P_1

PATIENT
  Age: 58 Year
  Weight: 59 kg

DRUGS (50)
  1. FASLODEX [Suspect]
     Active Substance: FULVESTRANT
     Indication: Breast cancer
     Dosage: DOSE UNKNOWN
  2. FASLODEX [Suspect]
     Active Substance: FULVESTRANT
     Dosage: DOSE UNKNOWN
     Route: 030
  3. FASLODEX [Suspect]
     Active Substance: FULVESTRANT
     Dosage: DOSE UNKNOWN
  4. FASLODEX [Suspect]
     Active Substance: FULVESTRANT
     Dosage: DOSE UNKNOWN
     Route: 030
  5. FASLODEX [Suspect]
     Active Substance: FULVESTRANT
     Dosage: DOSE UNKNOWN
  6. FASLODEX [Suspect]
     Active Substance: FULVESTRANT
     Dosage: DOSE UNKNOWN
     Route: 030
  7. FASLODEX [Suspect]
     Active Substance: FULVESTRANT
     Dosage: DOSE UNKNOWN
  8. FASLODEX [Suspect]
     Active Substance: FULVESTRANT
     Dosage: DOSE UNKNOWN
     Route: 030
  9. FASLODEX [Suspect]
     Active Substance: FULVESTRANT
     Dosage: ONCE EVERY 2 TO 4 WEEKS
  10. FASLODEX [Suspect]
     Active Substance: FULVESTRANT
     Dosage: ONCE EVERY 2 TO 4 WEEKS
     Route: 030
  11. FASLODEX [Suspect]
     Active Substance: FULVESTRANT
     Dosage: ONCE EVERY 2 TO 4 WEEKS
  12. FASLODEX [Suspect]
     Active Substance: FULVESTRANT
     Dosage: ONCE EVERY 2 TO 4 WEEKS
     Route: 030
  13. TRUQAP [Suspect]
     Active Substance: CAPIVASERTIB
     Indication: Breast cancer
     Dosage: 4-DAYS-ON, 3-DAYS-OFF SCHEDULE
  14. TRUQAP [Suspect]
     Active Substance: CAPIVASERTIB
     Dosage: 4-DAYS-ON, 3-DAYS-OFF SCHEDULE
     Route: 048
  15. TRUQAP [Suspect]
     Active Substance: CAPIVASERTIB
     Dosage: 4-DAYS-ON, 3-DAYS-OFF SCHEDULE
  16. TRUQAP [Suspect]
     Active Substance: CAPIVASERTIB
     Dosage: 4-DAYS-ON, 3-DAYS-OFF SCHEDULE
     Route: 048
  17. TRUQAP [Suspect]
     Active Substance: CAPIVASERTIB
     Dosage: 4-DAYS-ON, 3-DAYS-OFF SCHEDULE
  18. TRUQAP [Suspect]
     Active Substance: CAPIVASERTIB
     Dosage: 4-DAYS-ON, 3-DAYS-OFF SCHEDULE
     Route: 048
  19. TRUQAP [Suspect]
     Active Substance: CAPIVASERTIB
     Dosage: 4-DAYS-ON, 3-DAYS-OFF SCHEDULE
  20. TRUQAP [Suspect]
     Active Substance: CAPIVASERTIB
     Dosage: 4-DAYS-ON, 3-DAYS-OFF SCHEDULE
     Route: 048
  21. PALBOCICLIB [Concomitant]
     Active Substance: PALBOCICLIB
     Indication: Breast cancer
     Dosage: DOSE UNKNOWN
     Route: 065
  22. PALBOCICLIB [Concomitant]
     Active Substance: PALBOCICLIB
     Dosage: DOSE UNKNOWN
     Route: 065
  23. GIMERACIL\OTERACIL\TEGAFUR [Concomitant]
     Active Substance: GIMERACIL\OTERACIL POTASSIUM\TEGAFUR
     Indication: Breast cancer
     Dosage: DOSE UNKNOWN
     Route: 065
  24. GIMERACIL\OTERACIL\TEGAFUR [Concomitant]
     Active Substance: GIMERACIL\OTERACIL POTASSIUM\TEGAFUR
     Dosage: DOSE UNKNOWN
     Route: 065
  25. ERIBULIN [Concomitant]
     Active Substance: ERIBULIN
     Indication: Breast cancer
     Dosage: DOSE UNKNOWN
     Route: 065
  26. ERIBULIN [Concomitant]
     Active Substance: ERIBULIN
     Dosage: DOSE UNKNOWN
     Route: 065
  27. LETROZOLE [Concomitant]
     Active Substance: LETROZOLE
     Indication: Breast cancer
     Dosage: DOSE UNKNOWN
     Route: 065
  28. LETROZOLE [Concomitant]
     Active Substance: LETROZOLE
     Dosage: DOSE UNKNOWN
     Route: 065
  29. ABEMACICLIB [Concomitant]
     Active Substance: ABEMACICLIB
     Indication: Breast cancer
     Dosage: DOSE UNKNOWN
     Route: 065
  30. ABEMACICLIB [Concomitant]
     Active Substance: ABEMACICLIB
     Dosage: DOSE UNKNOWN
     Route: 065
  31. CAPECITABINE [Concomitant]
     Active Substance: CAPECITABINE
     Indication: Breast cancer
     Dosage: DOSE UNKNOWN
     Route: 065
  32. CAPECITABINE [Concomitant]
     Active Substance: CAPECITABINE
     Dosage: DOSE UNKNOWN
     Route: 065
  33. VINORELBINE TARTRATE [Concomitant]
     Active Substance: VINORELBINE TARTRATE
     Indication: Breast cancer
     Dosage: DOSE UNKNOWN
     Route: 065
  34. VINORELBINE TARTRATE [Concomitant]
     Active Substance: VINORELBINE TARTRATE
     Dosage: DOSE UNKNOWN
     Route: 065
  35. PACLITAXEL [Concomitant]
     Active Substance: PACLITAXEL
     Indication: Breast cancer
     Dosage: DOSE UNKNOWN
     Route: 065
  36. PACLITAXEL [Concomitant]
     Active Substance: PACLITAXEL
     Dosage: DOSE UNKNOWN
     Route: 065
  37. PACLITAXEL [Concomitant]
     Active Substance: PACLITAXEL
     Dosage: DOSE UNKNOWN
     Route: 065
  38. PACLITAXEL [Concomitant]
     Active Substance: PACLITAXEL
     Dosage: DOSE UNKNOWN
     Route: 065
  39. BEVACIZUMAB [Concomitant]
     Active Substance: BEVACIZUMAB
     Indication: Breast cancer
     Dosage: DOSE UNKNOWN
     Route: 065
  40. BEVACIZUMAB [Concomitant]
     Active Substance: BEVACIZUMAB
     Dosage: DOSE UNKNOWN
     Route: 065
  41. BEVACIZUMAB [Concomitant]
     Active Substance: BEVACIZUMAB
     Dosage: DOSE UNKNOWN
     Route: 065
  42. BEVACIZUMAB [Concomitant]
     Active Substance: BEVACIZUMAB
     Dosage: DOSE UNKNOWN
     Route: 065
  43. TOREMIFENE [Concomitant]
     Active Substance: TOREMIFENE
     Indication: Breast cancer
     Dosage: DOSE UNKNOWN
     Route: 065
  44. TOREMIFENE [Concomitant]
     Active Substance: TOREMIFENE
     Dosage: DOSE UNKNOWN
     Route: 065
  45. GEMCITABINE [Concomitant]
     Active Substance: GEMCITABINE
     Indication: Breast cancer
     Dosage: DOSE UNKNOWN
     Route: 065
  46. GEMCITABINE [Concomitant]
     Active Substance: GEMCITABINE
     Dosage: DOSE UNKNOWN
     Route: 065
  47. EPIRUBICIN HYDROCHLORIDE [Concomitant]
     Active Substance: EPIRUBICIN HYDROCHLORIDE
     Indication: Breast cancer
     Dosage: DOSE UNKNOWN
     Route: 065
  48. EPIRUBICIN HYDROCHLORIDE [Concomitant]
     Active Substance: EPIRUBICIN HYDROCHLORIDE
     Dosage: DOSE UNKNOWN
     Route: 065
  49. CYCLOPHOSPHAMIDE [Concomitant]
     Active Substance: CYCLOPHOSPHAMIDE
     Indication: Breast cancer
     Dosage: DOSE UNKNOWN
     Route: 065
  50. CYCLOPHOSPHAMIDE [Concomitant]
     Active Substance: CYCLOPHOSPHAMIDE
     Dosage: DOSE UNKNOWN
     Route: 065

REACTIONS (7)
  - Erythema multiforme [Recovered/Resolved]
  - Diarrhoea [Recovered/Resolved]
  - Hyperglycaemia [Recovered/Resolved]
  - Pyrexia [Recovered/Resolved]
  - SARS-CoV-2 test negative [Unknown]
  - Inflammation [Recovered/Resolved]
  - Upper respiratory tract infection [Unknown]
